FAERS Safety Report 7472805-4 (Version None)
Quarter: 2011Q1

REPORT INFORMATION
  Report Type: 
  Country: None (occurrence: None)
  Receive Date: 20110302
  Receipt Date: 20100826
  Transmission Date: 20110831
  Serious: Yes (Hospitalization, Other)
  Sender: FDA-Public Use
  Company Number: 163-21880-10052243

PATIENT
  Age: 75 Year
  Sex: Male

DRUGS (19)
  1. COUMADIN [Concomitant]
  2. REVLIMID [Suspect]
     Indication: MULTIPLE MYELOMA
     Dosage: 10 MG, 1 IN 1 D, PO
     Route: 048
     Dates: start: 20080403
  3. ELAVIL (AMITRIPTYLINE HYDROCHLIORIDE) [Concomitant]
  4. IMODIUM [Concomitant]
  5. VITAMIN B (VITAMIN B) [Concomitant]
  6. NIACIN [Concomitant]
  7. AZMACORT [Concomitant]
  8. ACETAMINOPHEN [Concomitant]
  9. CALCIUM (CALCIUM) [Concomitant]
  10. GLUCOSAMINE CHONDROITIN (GLUCOSAMINE W/CHONDROITIN SULFATE) [Concomitant]
  11. NEURONTIN [Concomitant]
  12. ACCUPRIL [Concomitant]
  13. DEXAMETHASONE [Concomitant]
  14. FOSAMAX [Concomitant]
  15. VESICARE [Concomitant]
  16. ALBUTEROL [Concomitant]
  17. ASCORBIC ACID [Concomitant]
  18. FLECAINIDE ACETATE [Concomitant]
  19. TOPROL-XL [Concomitant]

REACTIONS (3)
  - HYPONATRAEMIA [None]
  - ACUTE SINUSITIS [None]
  - MENTAL STATUS CHANGES [None]
